FAERS Safety Report 23270152 (Version 3)
Quarter: 2024Q1

REPORT INFORMATION
  Report Type: Report from Study
  Country: US (occurrence: US)
  Receive Date: 20231207
  Receipt Date: 20240326
  Transmission Date: 20240409
  Serious: Yes (Hospitalization)
  Sender: FDA-Public Use
  Company Number: US-BoehringerIngelheim-2022-BI-170932

PATIENT
  Age: 75 Year
  Sex: Female

DRUGS (2)
  1. OFEV [Suspect]
     Active Substance: NINTEDANIB
     Indication: Idiopathic pulmonary fibrosis
     Dosage: ADDTL LOT#S: 203426,203670A,204096,204121
     Route: 048
     Dates: start: 20220510
  2. OFEV [Suspect]
     Active Substance: NINTEDANIB
     Indication: Interstitial lung disease

REACTIONS (35)
  - Diverticulitis intestinal haemorrhagic [Unknown]
  - Kidney infection [Recovered/Resolved]
  - Diarrhoea [Recovered/Resolved]
  - Fungal infection [Recovered/Resolved]
  - Vomiting [Recovered/Resolved]
  - Diarrhoea [Recovered/Resolved]
  - Blood potassium abnormal [Recovered/Resolved]
  - Balance disorder [Not Recovered/Not Resolved]
  - Nasopharyngitis [Not Recovered/Not Resolved]
  - Dyspnoea [Unknown]
  - Diarrhoea [Unknown]
  - Urinary tract infection [Unknown]
  - Cystocele [Unknown]
  - Memory impairment [Unknown]
  - Vaginal infection [Unknown]
  - Fungal infection [Unknown]
  - Protein total increased [Unknown]
  - Illness [Unknown]
  - Productive cough [Unknown]
  - Blood potassium decreased [Unknown]
  - Decreased appetite [Unknown]
  - Weight decreased [Unknown]
  - Oropharyngeal pain [Unknown]
  - Headache [Unknown]
  - Lung disorder [Recovered/Resolved]
  - Hiatus hernia [Unknown]
  - Contusion [Unknown]
  - Arthralgia [Unknown]
  - Intervertebral disc degeneration [Unknown]
  - Cystitis [Unknown]
  - Urinary incontinence [Unknown]
  - Dysuria [Recovered/Resolved]
  - Sputum discoloured [Unknown]
  - Neck pain [Unknown]
  - Oxygen saturation decreased [Recovering/Resolving]

NARRATIVE: CASE EVENT DATE: 20220513
